FAERS Safety Report 16596277 (Version 1)
Quarter: 2019Q3

REPORT INFORMATION
  Report Type: Report from Study
  Country: FR (occurrence: FR)
  Receive Date: 20190719
  Receipt Date: 20190719
  Transmission Date: 20191004
  Serious: Yes (Other)
  Sender: FDA-Public Use
  Company Number: PHHY2019FR164382

PATIENT
  Age: 70 Year
  Sex: Male

DRUGS (1)
  1. TISAGENLECLEUCEL. [Suspect]
     Active Substance: TISAGENLECLEUCEL
     Indication: LYMPHOMA
     Dosage: UNK
     Route: 042
     Dates: start: 20190313

REACTIONS (9)
  - Pyrexia [Unknown]
  - Cytokine release syndrome [Recovered/Resolved]
  - Heart rate increased [Unknown]
  - Extrapyramidal disorder [Unknown]
  - Blood pressure increased [Unknown]
  - Confusional state [Unknown]
  - Facial paralysis [Unknown]
  - Neurotoxicity [Recovered/Resolved]
  - Palatal disorder [Unknown]

NARRATIVE: CASE EVENT DATE: 20190316
